FAERS Safety Report 16013524 (Version 1)
Quarter: 2019Q1

REPORT INFORMATION
  Report Type: Spontaneous
  Country: US (occurrence: US)
  Receive Date: 20190227
  Receipt Date: 20190227
  Transmission Date: 20190418
  Serious: Yes (Hospitalization, Disabling, Other)
  Sender: FDA-Public Use
  Company Number: US-JNJFOC-20190236423

PATIENT
  Age: 52 Year
  Sex: Male

DRUGS (1)
  1. INVOKANA [Suspect]
     Active Substance: CANAGLIFLOZIN
     Indication: TYPE 2 DIABETES MELLITUS
     Route: 048
     Dates: start: 20140708, end: 20170708

REACTIONS (4)
  - Limb amputation [Unknown]
  - Acute kidney injury [Unknown]
  - Ulcer [Unknown]
  - Gangrene [Unknown]

NARRATIVE: CASE EVENT DATE: 20160226
